FAERS Safety Report 19223872 (Version 1)
Quarter: 2021Q2

REPORT INFORMATION
  Report Type: Spontaneous
  Country: CN (occurrence: CN)
  Receive Date: 20210506
  Receipt Date: 20210506
  Transmission Date: 20210717
  Serious: Yes (Other)
  Sender: FDA-Public Use
  Company Number: CN-ROCHE-2821298

PATIENT
  Age: 67 Year
  Sex: Male

DRUGS (7)
  1. XELODA [Suspect]
     Active Substance: CAPECITABINE
     Indication: COLON CANCER
     Route: 048
     Dates: start: 2019
  2. XELODA [Suspect]
     Active Substance: CAPECITABINE
     Route: 048
     Dates: start: 20210312
  3. AVASTIN [Suspect]
     Active Substance: BEVACIZUMAB
     Indication: COLON CANCER
     Route: 065
     Dates: start: 20201024, end: 20210312
  4. OXALIPLATIN. [Concomitant]
     Active Substance: OXALIPLATIN
     Indication: COLON CANCER
     Dates: start: 2019
  5. OXALIPLATIN. [Concomitant]
     Active Substance: OXALIPLATIN
     Dates: start: 20201024
  6. XELODA [Suspect]
     Active Substance: CAPECITABINE
     Route: 065
     Dates: start: 20201024
  7. XELODA [Suspect]
     Active Substance: CAPECITABINE
     Route: 065
     Dates: start: 20201024

REACTIONS (4)
  - Myelosuppression [Recovering/Resolving]
  - Gastrointestinal disorder [Unknown]
  - Gastrointestinal haemorrhage [Recovering/Resolving]
  - Neurotoxicity [Unknown]

NARRATIVE: CASE EVENT DATE: 202102
